FAERS Safety Report 7470415-6 (Version None)
Quarter: 2011Q2

REPORT INFORMATION
  Report Type: 
  Country: None (occurrence: None)
  Receive Date: 20110510
  Receipt Date: 20110428
  Transmission Date: 20111010
  Serious: Yes (Hospitalization, Other)
  Sender: FDA-Public Use
  Company Number: US-BAYER-201022365NA

PATIENT
  Age: 36 Year
  Sex: Female

DRUGS (3)
  1. YASMIN [Suspect]
     Indication: PRODUCT USED FOR UNKNOWN INDICATION
     Route: 048
     Dates: start: 20020801, end: 20071201
  2. ACETAMINOPHEN [Concomitant]
     Route: 048
  3. HYDROCHLOROTHIAZIDE [Concomitant]
     Route: 048

REACTIONS (3)
  - PULMONARY EMBOLISM [None]
  - ENDOMETRIAL CANCER [None]
  - DEEP VEIN THROMBOSIS [None]
